FAERS Safety Report 9431918 (Version 1)
Quarter: 2013Q3

REPORT INFORMATION
  Report Type: Spontaneous
  Country: FR (occurrence: FR)
  Receive Date: 20130731
  Receipt Date: 20130731
  Transmission Date: 20140515
  Serious: Yes (Hospitalization)
  Sender: FDA-Public Use
  Company Number: PHHY2013FR080749

PATIENT
  Age: 63 Year
  Sex: Female

DRUGS (1)
  1. TEGRETOL [Suspect]
     Indication: PARTIAL SEIZURES
     Dosage: 500 MG, DAILY
     Route: 048
     Dates: start: 201305, end: 201307

REACTIONS (4)
  - Cheilitis [Recovered/Resolved]
  - Ectropion [Recovered/Resolved]
  - Drug reaction with eosinophilia and systemic symptoms [Recovered/Resolved]
  - Dermatitis exfoliative [Recovered/Resolved]
